FAERS Safety Report 4795784-7 (Version None)
Quarter: 2005Q3

REPORT INFORMATION
  Report Type: 
  Country: None (occurrence: None)
  Receive Date: 20050916
  Receipt Date: 20040908
  Transmission Date: 20060218
  Serious: Yes (Other)
  Sender: FDA-Public Use
  Company Number: US-JNJFOC-20040704550

PATIENT
  Age: 36 Year
  Sex: Female
  Weight: 45.3597 kg

DRUGS (6)
  1. TOPAMAX [Suspect]
     Indication: MIGRAINE
     Dosage: 25 MG, IN 1 DAY, ORAL; SEE IMAGE
     Route: 048
     Dates: end: 20040601
  2. TOPAMAX [Suspect]
     Indication: MIGRAINE
     Dosage: 25 MG, IN 1 DAY, ORAL; SEE IMAGE
     Route: 048
     Dates: start: 20040527
  3. COUMADIN [Concomitant]
  4. KEPPRA [Concomitant]
  5. VICODIN [Concomitant]
  6. STADOL [Concomitant]

REACTIONS (1)
  - MYOPIA [None]
